FAERS Safety Report 15107105 (Version 3)
Quarter: 2018Q3

REPORT INFORMATION
  Report Type: Spontaneous
  Country: US (occurrence: US)
  Receive Date: 20180704
  Receipt Date: 20180731
  Transmission Date: 20181010
  Serious: Yes (Death, Other)
  Sender: FDA-Public Use
  Company Number: US-WEST-WARD PHARMACEUTICALS CORP.-US-H14001-18-05306

PATIENT
  Sex: Female

DRUGS (1)
  1. MORPHINE [Suspect]
     Active Substance: MORPHINE
     Indication: MUSCLE SPASMS
     Route: 048

REACTIONS (9)
  - Off label use [Unknown]
  - Death [Fatal]
  - General physical health deterioration [Unknown]
  - Lung neoplasm malignant [None]
  - Condition aggravated [Unknown]
  - Decreased appetite [Unknown]
  - Memory impairment [Unknown]
  - Unevaluable event [Unknown]
  - Contraindicated drug prescribed [None]
